FAERS Safety Report 8170699-5 (Version None)
Quarter: 2012Q1

REPORT INFORMATION
  Report Type: 
  Country: None (occurrence: None)
  Receive Date: 20120228
  Receipt Date: 20120217
  Transmission Date: 20120608
  Serious: Yes (Other)
  Sender: FDA-Public Use
  Company Number: IT-ELI_LILLY_AND_COMPANY-IT201201004843

PATIENT
  Sex: Male

DRUGS (4)
  1. DEXAMETHASONE [Concomitant]
     Dosage: UNK, UNKNOWN
  2. DOBETIN [Concomitant]
     Dosage: UNK, UNKNOWN
  3. FOLIC ACID [Concomitant]
     Dosage: UNK, UNKNOWN
  4. ALIMTA [Suspect]
     Indication: PLEURAL MESOTHELIOMA
     Dosage: UNK, UNKNOWN
     Route: 042
     Dates: start: 20111213, end: 20120119

REACTIONS (1)
  - DEEP VEIN THROMBOSIS [None]
